FAERS Safety Report 8018948-8 (Version None)
Quarter: 2012Q1

REPORT INFORMATION
  Report Type: 
  Country: None (occurrence: None)
  Receive Date: 20120103
  Receipt Date: 20111231
  Transmission Date: 20120608
  Serious: No
  Sender: FDA-Public Use
  Company Number: US-PFIZER INC-2012000011

PATIENT
  Sex: Male
  Weight: 70.295 kg

DRUGS (5)
  1. LYRICA [Suspect]
     Indication: NEUROPATHY PERIPHERAL
  2. OXYCONTIN [Concomitant]
     Indication: ARTHRITIS
  3. OXYCONTIN [Concomitant]
     Indication: PAIN
     Dosage: UNK
  4. OXYCONTIN [Concomitant]
     Indication: INTERVERTEBRAL DISC DEGENERATION
  5. LYRICA [Suspect]
     Indication: FIBROMYALGIA
     Dosage: 50 MG, 1X/DAY
     Route: 048
     Dates: start: 20111230, end: 20111230

REACTIONS (4)
  - MUSCLE CONTRACTIONS INVOLUNTARY [None]
  - PAIN [None]
  - VOMITING [None]
  - MUSCLE TWITCHING [None]
